FAERS Safety Report 6826298-8 (Version None)
Quarter: 2010Q3

REPORT INFORMATION
  Report Type: 
  Country: None (occurrence: None)
  Receive Date: 20100709
  Receipt Date: 20100629
  Transmission Date: 20110219
  Serious: Yes (Other)
  Sender: FDA-Public Use
  Company Number: PHFR2010GB01177

PATIENT
  Age: 56 Year
  Sex: Male

DRUGS (11)
  1. CLOZAPINE [Suspect]
     Dosage: UNK
     Dates: start: 20030209, end: 20100626
  2. ZAPONEX [Suspect]
     Dosage: 100MG MANE AND 200MG NOCTE
     Route: 048
     Dates: start: 20090926
  3. ACTOS [Concomitant]
     Dosage: 40MG/DAY
  4. ATORVASTATIN [Concomitant]
     Indication: BLOOD CHOLESTEROL INCREASED
     Dosage: 40 MG, QD
  5. ESOMEPRAZOLE MAGNESIUM [Concomitant]
     Dosage: 40MG/DAY
  6. EZETROL [Concomitant]
     Dosage: 10 MG, QD
  7. FERROUS SULFATE TAB [Concomitant]
     Dosage: 400 MG, QD
  8. FLUOXETINE [Concomitant]
     Dosage: 40 MG, QD
  9. ORPHENADRINE CITRATE [Concomitant]
     Dosage: 100 MG, QD
  10. METFORMIN HCL [Concomitant]
     Indication: DIABETES MELLITUS
  11. GLICLAZIDE [Concomitant]
     Indication: DIABETES MELLITUS

REACTIONS (1)
  - TOOTH ABSCESS [None]
